FAERS Safety Report 5079552-7 (Version None)
Quarter: 2006Q3

REPORT INFORMATION
  Report Type: 
  Country: None (occurrence: None)
  Receive Date: 20060811
  Receipt Date: 20060811
  Transmission Date: 20061208
  Serious: No
  Sender: FDA-Public Use
  Company Number: None

PATIENT
  Age: 73 Year
  Sex: Female
  Weight: 49.8957 kg

DRUGS (1)
  1. VENTOLIN HFA [Suspect]
     Indication: EMPHYSEMA
     Dosage: 2 PUFFS   4 TIMES DAILY  PO
     Route: 048
     Dates: start: 20060724, end: 20060805

REACTIONS (2)
  - DRUG EFFECT DECREASED [None]
  - PHARMACEUTICAL PRODUCT COMPLAINT [None]
